FAERS Safety Report 7910627 (Version 3)
Quarter: 2017Q2

REPORT INFORMATION
  Report Type: Spontaneous
  Country: GB (occurrence: GB)
  Receive Date: 20110422
  Receipt Date: 20170612
  Transmission Date: 20170830
  Serious: Yes (Hospitalization, Other)
  Sender: FDA-Public Use
  Company Number: GB-PFIZER INC-2011086028

PATIENT
  Age: 19 Year
  Sex: Female

DRUGS (3)
  1. MIFEGYNE [Suspect]
     Active Substance: MIFEPRISTONE
     Indication: ABORTION INDUCED
     Dosage: 200 MG, 1X/DAY
     Route: 048
     Dates: start: 20100704, end: 20100704
  2. MIFEGYNE [Suspect]
     Active Substance: MIFEPRISTONE
     Dosage: 600 MG, 1X/DAY
     Route: 048
     Dates: start: 20100707, end: 20100707
  3. MISOPROSTOL. [Suspect]
     Active Substance: MISOPROSTOL
     Indication: ABORTION INDUCED
     Dosage: 800 UG, 2X/DAY
     Route: 067
     Dates: start: 20100706, end: 20100706

REACTIONS (4)
  - Incorrect dose administered [Unknown]
  - Inappropriate schedule of drug administration [Unknown]
  - Drug ineffective for unapproved indication [Unknown]
  - Incorrect route of drug administration [Unknown]

NARRATIVE: CASE EVENT DATE: 201007
